FAERS Safety Report 10418336 (Version 1)
Quarter: 2014Q3

REPORT INFORMATION
  Report Type: Spontaneous
  Country: GB (occurrence: GB)
  Receive Date: 20140829
  Receipt Date: 20140829
  Transmission Date: 20150326
  Serious: Yes (Hospitalization)
  Sender: FDA-Public Use
  Company Number: GB-WATSON-2014-18780

PATIENT
  Age: 30 Year
  Sex: Female
  Weight: 60 kg

DRUGS (13)
  1. MEBEVERINE [Concomitant]
     Active Substance: MEBEVERINE
     Indication: IRRITABLE BOWEL SYNDROME
     Dosage: 135MG THREE TIMES DAILY WHEN REQUIRED
     Route: 065
     Dates: start: 20140429
  2. SALBUTAMOL [Concomitant]
     Active Substance: ALBUTEROL
     Indication: ASTHMA
     Dosage: 100 ?G, PRN
     Route: 065
  3. CHLORPHENAMINE [Concomitant]
     Active Substance: CHLORPHENIRAMINE MALEATE
     Indication: PRODUCT USED FOR UNKNOWN INDICATION
     Dosage: 4 MG, PRN
     Route: 065
  4. LOPERAMIDE [Concomitant]
     Active Substance: LOPERAMIDE
     Indication: IRRITABLE BOWEL SYNDROME
     Dosage: 2 MG, PRN
     Route: 065
  5. MACROGOL [Concomitant]
     Active Substance: POLYETHYLENE GLYCOLS
     Indication: IRRITABLE BOWEL SYNDROME
     Dosage: 1 SACHET TWICE DAILY WHEN REQUIRED
     Route: 048
  6. METRONIDAZOLE. [Concomitant]
     Active Substance: METRONIDAZOLE
     Indication: PRODUCT USED FOR UNKNOWN INDICATION
     Dosage: 400 MG, TID
     Route: 065
     Dates: start: 20140205, end: 20140211
  7. IBUPROFEN. [Concomitant]
     Active Substance: IBUPROFEN
     Indication: PRODUCT USED FOR UNKNOWN INDICATION
     Dosage: 400MG THREE TIMES DAILY WHEN REQUIRED
     Route: 065
  8. PRUCALOPRIDE [Suspect]
     Active Substance: PRUCALOPRIDE
     Indication: IRRITABLE BOWEL SYNDROME
     Dosage: 2 MG, DAILY
     Route: 048
     Dates: start: 201307, end: 20140513
  9. ERYTHROMYCIN. [Concomitant]
     Active Substance: ERYTHROMYCIN
     Indication: PRODUCT USED FOR UNKNOWN INDICATION
     Dosage: 1 G, BID
     Route: 065
     Dates: start: 20140121, end: 20140128
  10. TRAMCET [Concomitant]
     Active Substance: ACETAMINOPHEN\TRAMADOL
     Indication: PRODUCT USED FOR UNKNOWN INDICATION
     Dosage: 37.5MG/500MG TABLETS - 2 TABLETS WHEN REQUIRED
     Route: 048
     Dates: start: 20140429
  11. CITALOPRAM [Suspect]
     Active Substance: CITALOPRAM HYDROBROMIDE
     Indication: IRRITABLE BOWEL SYNDROME
     Dosage: 10 MG, DAILY
     Route: 048
     Dates: start: 20140306, end: 20140513
  12. NAPROXEN. [Concomitant]
     Active Substance: NAPROXEN
     Indication: PRODUCT USED FOR UNKNOWN INDICATION
     Dosage: 250MG - 500MG TWICE DAILY WHEN REQUIRED
     Route: 065
     Dates: start: 20140506
  13. TRIMETHOPRIM. [Concomitant]
     Active Substance: TRIMETHOPRIM
     Indication: URINARY TRACT INFECTION
     Dosage: 200 MG, BID
     Route: 065
     Dates: start: 20140408, end: 20140409

REACTIONS (1)
  - Electrocardiogram QT prolonged [Recovering/Resolving]
